FAERS Safety Report 17374792 (Version 1)
Quarter: 2020Q1

REPORT INFORMATION
  Report Type: Spontaneous
  Country: US (occurrence: US)
  Receive Date: 20200204
  Receipt Date: 20200204
  Transmission Date: 20200409
  Serious: Yes (Hospitalization)
  Sender: FDA-Public Use
  Company Number: None

PATIENT
  Age: 14 Year
  Sex: Female

DRUGS (4)
  1. BENADRYL ALG [Concomitant]
     Dates: start: 20190402
  2. ZOFRAN [Concomitant]
     Active Substance: ONDANSETRON HYDROCHLORIDE
     Dates: start: 20190402
  3. BERINERT [Suspect]
     Active Substance: HUMAN C1-ESTERASE INHIBITOR
     Indication: HEREDITARY ANGIOEDEMA
     Route: 042
     Dates: start: 20190413
  4. BERINERT [Concomitant]
     Active Substance: HUMAN C1-ESTERASE INHIBITOR
     Dates: start: 20190402

REACTIONS (2)
  - Nonspecific reaction [None]
  - Therapy non-responder [None]

NARRATIVE: CASE EVENT DATE: 20200203
